FAERS Safety Report 7763528-2 (Version None)
Quarter: 2011Q3

REPORT INFORMATION
  Report Type: 
  Country: None (occurrence: None)
  Receive Date: 20110920
  Receipt Date: 20110919
  Transmission Date: 20111222
  Serious: Yes (Death)
  Sender: FDA-Public Use
  Company Number: GB-ABBOTT-11P-167-0855759-00

PATIENT
  Sex: Male

DRUGS (2)
  1. AZULFIDINE [Concomitant]
     Indication: PRODUCT USED FOR UNKNOWN INDICATION
  2. HUMIRA [Suspect]
     Indication: RHEUMATOID ARTHRITIS
     Route: 058
     Dates: start: 20070226, end: 20080623

REACTIONS (4)
  - DEMENTIA ALZHEIMER'S TYPE [None]
  - ANAEMIA [None]
  - RHEUMATOID ARTHRITIS [None]
  - RENAL FAILURE CHRONIC [None]
